FAERS Safety Report 5843658-2 (Version None)
Quarter: 2008Q3

REPORT INFORMATION
  Report Type: 
  Country: None (occurrence: None)
  Receive Date: 20080813
  Receipt Date: 20080805
  Transmission Date: 20090109
  Serious: Yes (Other)
  Sender: FDA-Public Use
  Company Number: BR-ABBOTT-08P-020-0468967-00

PATIENT

DRUGS (3)
  1. CLARITHROMYCIN [Suspect]
     Indication: INFECTION
     Route: 048
  2. AMIKACIN [Concomitant]
     Indication: INFECTION
  3. UNKNOWN ANTIMICROBIAL MEDICATIONS [Concomitant]
     Indication: INFECTION

REACTIONS (1)
  - HEPATIC NEOPLASM [None]
